FAERS Safety Report 20210160 (Version 1)
Quarter: 2021Q4

REPORT INFORMATION
  Report Type: Report from Study
  Country: US (occurrence: US)
  Receive Date: 20211221
  Receipt Date: 20211221
  Transmission Date: 20220303
  Serious: Yes (Other)
  Sender: FDA-Public Use
  Company Number: US-ABBVIE-21K-163-4205668-00

PATIENT
  Age: 77 Year
  Sex: Male
  Weight: 92.162 kg

DRUGS (1)
  1. IMBRUVICA [Suspect]
     Active Substance: IBRUTINIB
     Indication: Chronic lymphocytic leukaemia
     Route: 048
     Dates: start: 20210922

REACTIONS (1)
  - Transurethral bladder resection [Unknown]

NARRATIVE: CASE EVENT DATE: 20211006
